FAERS Safety Report 18502300 (Version 1)
Quarter: 2020Q4

REPORT INFORMATION
  Report Type: Other
  Country: US (occurrence: US)
  Receive Date: 20201113
  Receipt Date: 20201113
  Transmission Date: 20210114
  Serious: No
  Sender: FDA-Public Use
  Company Number: US-LEADIANT BIOSCIENCES INC-2020STPI000131

PATIENT
  Sex: Female

DRUGS (12)
  1. CYSTARAN [Suspect]
     Active Substance: CYSTEAMINE HYDROCHLORIDE
     Indication: CYSTINOSIS
     Dosage: EYE DROPS SIX TIMES DAILY
     Route: 047
     Dates: start: 20160912
  2. PROCYSBI [Concomitant]
     Active Substance: CYSTEAMINE BITARTRATE
  3. ENDOMETRIN [Concomitant]
     Active Substance: PROGESTERONE
  4. IRON [Concomitant]
     Active Substance: IRON
  5. ONDANSETRON [Concomitant]
     Active Substance: ONDANSETRON
  6. TRIAMCINOLON [TRIAMCINOLONE] [Concomitant]
     Active Substance: TRIAMCINOLONE
  7. MUPIROCIN. [Concomitant]
     Active Substance: MUPIROCIN
  8. K PHOS NEUTRAL [Concomitant]
     Active Substance: POTASSIUM PHOSPHATE, MONOBASIC\SODIUM PHOSPHATE, DIBASIC, ANHYDROUS\SODIUM PHOSPHATE, MONOBASIC, MONOHYDRATE
  9. D-VI-SOL [Concomitant]
  10. CYTRA K [Concomitant]
  11. LEVOCARNITINE. [Concomitant]
     Active Substance: LEVOCARNITINE
     Indication: CARNITINE DEFICIENCY
  12. OMNITROPE [Concomitant]
     Active Substance: SOMATROPIN

REACTIONS (1)
  - Eye irritation [Not Recovered/Not Resolved]
